FAERS Safety Report 16945435 (Version 1)
Quarter: 2019Q4

REPORT INFORMATION
  Report Type: Spontaneous
  Country: US (occurrence: US)
  Receive Date: 20191021
  Receipt Date: 20191021
  Transmission Date: 20200122
  Serious: Yes (Disabling)
  Sender: FDA-Public Use
  Company Number: None

PATIENT
  Age: 48 Year
  Sex: Male
  Weight: 78.75 kg

DRUGS (1)
  1. CIPROFLOXACIN HCI [Suspect]
     Active Substance: CIPROFLOXACIN HYDROCHLORIDE
     Indication: HAEMATOSPERMIA
     Dates: start: 20190219, end: 20190303

REACTIONS (10)
  - Myalgia [None]
  - Pain in extremity [None]
  - Musculoskeletal chest pain [None]
  - Discomfort [None]
  - Musculoskeletal discomfort [None]
  - Arthralgia [None]
  - Asthenia [None]
  - Muscle disorder [None]
  - Musculoskeletal pain [None]
  - Impaired quality of life [None]

NARRATIVE: CASE EVENT DATE: 20190515
